FAERS Safety Report 22212300 (Version 2)
Quarter: 2023Q2

REPORT INFORMATION
  Report Type: Report from Study
  Country: US (occurrence: US)
  Receive Date: 20230414
  Receipt Date: 20230504
  Transmission Date: 20230721
  Serious: No
  Sender: FDA-Public Use
  Company Number: US-SA-SAC20230414000311

PATIENT
  Age: 37 Year
  Sex: Female

DRUGS (17)
  1. DUPILUMAB [Suspect]
     Active Substance: DUPILUMAB
     Indication: Asthma
     Dosage: 400 MG, 1X
     Route: 058
     Dates: start: 20230313, end: 20230313
  2. DUPILUMAB [Suspect]
     Active Substance: DUPILUMAB
     Dosage: 200 MG, QOW
     Route: 058
     Dates: start: 20230327, end: 20230327
  3. ALBUTEROL SULFATE [Concomitant]
     Active Substance: ALBUTEROL SULFATE
  4. AZITHROMYCIN [Concomitant]
     Active Substance: AZITHROMYCIN
     Dosage: 250 MG
  5. BUDESONIDE [Concomitant]
     Active Substance: BUDESONIDE
  6. CLOBETASOL [Concomitant]
     Active Substance: CLOBETASOL
  7. DULOXETINE [Concomitant]
     Active Substance: DULOXETINE
     Dosage: 30MG
  8. EPINEPHRINE [Concomitant]
     Active Substance: EPINEPHRINE
     Dosage: 0.3MG
  9. FLUTICASONE [Concomitant]
     Active Substance: FLUTICASONE
  10. NUCALA [Concomitant]
     Active Substance: MEPOLIZUMAB
     Dosage: 100MG/ML
  11. PREDNISONE [Concomitant]
     Active Substance: PREDNISONE
     Dosage: 10MG
  12. PREDNISONE [Concomitant]
     Active Substance: PREDNISONE
     Dosage: UNK
  13. SYMJEPI [Concomitant]
     Active Substance: EPINEPHRINE
  14. TRELEGY ELLIPTA [Concomitant]
     Active Substance: FLUTICASONE FUROATE\UMECLIDINIUM BROMIDE\VILANTEROL TRIFENATATE
  15. VITAMIN C [Concomitant]
     Active Substance: ASCORBIC ACID
     Dosage: 500MG
  16. ALBUTEROL [Concomitant]
     Active Substance: ALBUTEROL
  17. ENSKYCE [Concomitant]
     Active Substance: DESOGESTREL\ETHINYL ESTRADIOL

REACTIONS (2)
  - Hypersensitivity [Not Recovered/Not Resolved]
  - Cough [Not Recovered/Not Resolved]

NARRATIVE: CASE EVENT DATE: 20230101
